FAERS Safety Report 8848255 (Version 1)
Quarter: 2012Q4

REPORT INFORMATION
  Report Type: Report from Study
  Country: JP (occurrence: JP)
  Receive Date: 20121018
  Receipt Date: 20121018
  Transmission Date: 20130627
  Serious: Yes (Hospitalization, Other)
  Sender: FDA-Public Use
  Company Number: JP-VERTEX PHARMACEUTICAL INC.-AE-2012-008322

PATIENT
  Age: 53 Year
  Sex: Male

DRUGS (10)
  1. VX-950 [Suspect]
     Indication: HEPATITIS C
     Dosage: 1500 mg, UNK
     Route: 048
     Dates: start: 20120328
  2. RIBAVIRIN [Suspect]
     Indication: HEPATITIS C
     Dosage: 800 mg, qd
     Route: 048
     Dates: start: 20120328, end: 20120907
  3. PEGINTERFERON ALFA-2B [Concomitant]
     Dosage: 1.5 ?g/kg, qw
     Route: 058
     Dates: start: 20120328, end: 20120907
  4. LIVALO [Concomitant]
     Dosage: 2 mg, qd
     Route: 048
  5. EPADEL                             /01682401/ [Concomitant]
     Dosage: 1800 mg, qd
     Route: 048
  6. NORVASC [Concomitant]
     Dosage: 10 mg, qd
     Route: 048
  7. BLOPRESS [Concomitant]
     Dosage: 8 mg, qd
     Route: 048
  8. FEROTYM [Concomitant]
     Dosage: 100 mg, qd
     Route: 048
  9. CLARITIN REDITABS [Concomitant]
     Dosage: 10 mg, qd
     Route: 048
  10. MAGLAX [Concomitant]
     Dosage: 500 mg, qd
     Route: 048

REACTIONS (5)
  - Rash [Recovered/Resolved]
  - Rash [Recovered/Resolved]
  - Anaemia [Not Recovered/Not Resolved]
  - Anaemia [Not Recovered/Not Resolved]
  - Anaemia [Not Recovered/Not Resolved]
